FAERS Safety Report 8313278-9 (Version None)
Quarter: 2012Q2

REPORT INFORMATION
  Report Type: 
  Country: None (occurrence: None)
  Receive Date: 20120426
  Receipt Date: 20120418
  Transmission Date: 20120825
  Serious: Yes (Hospitalization)
  Sender: FDA-Public Use
  Company Number: US-BAYER-2012-002911

PATIENT
  Age: 18 Year
  Sex: Female
  Weight: 61.224 kg

DRUGS (3)
  1. SERTRALINE HYDROCHLORIDE [Concomitant]
     Dosage: 50 MG, UNK
  2. DROSPIRENONE AND ETHINYL ESTRADIOL [Suspect]
     Dosage: UNK
     Route: 048
     Dates: start: 20070301, end: 20091101
  3. YASMIN [Suspect]
     Dosage: UNK
     Route: 048
     Dates: start: 20070301, end: 20091101

REACTIONS (7)
  - GALLBLADDER INJURY [None]
  - ANXIETY [None]
  - ANHEDONIA [None]
  - CHOLECYSTITIS CHRONIC [None]
  - GENERAL PHYSICAL HEALTH DETERIORATION [None]
  - EMOTIONAL DISTRESS [None]
  - PAIN [None]
